FAERS Safety Report 18416920 (Version 1)
Quarter: 2020Q4

REPORT INFORMATION
  Report Type: Spontaneous
  Country: US (occurrence: US)
  Receive Date: 20201022
  Receipt Date: 20201022
  Transmission Date: 20210114
  Serious: Yes (Other)
  Sender: FDA-Public Use
  Company Number: US-SUPERNUS PHARMACEUTICALS, INC.-2020SUP00473

PATIENT
  Age: 35 Year
  Sex: Male

DRUGS (1)
  1. OXTELLAR XR [Suspect]
     Active Substance: OXCARBAZEPINE
     Dosage: 1600 MG, 1X/DAY
     Route: 048

REACTIONS (5)
  - Visual impairment [Unknown]
  - Focal dyscognitive seizures [Unknown]
  - Nervousness [Unknown]
  - Anxiety [Unknown]
  - Simple partial seizures [Unknown]
